FAERS Safety Report 21354007 (Version 1)
Quarter: 2022Q3

REPORT INFORMATION
  Report Type: Spontaneous
  Country: DE (occurrence: None)
  Receive Date: 20220920
  Receipt Date: 20220920
  Transmission Date: 20221027
  Serious: Yes (Other)
  Sender: FDA-Public Use
  Company Number: DE-Accord-277876

PATIENT
  Age: 39 Year
  Sex: Male
  Weight: 69 kg

DRUGS (4)
  1. FLUOROURACIL [Suspect]
     Active Substance: FLUOROURACIL
     Indication: Adenocarcinoma pancreas
     Dosage: NINE CYCLES
  2. IRINOTECAN [Suspect]
     Active Substance: IRINOTECAN
     Indication: Adenocarcinoma pancreas
     Dosage: NINE CYCLES
  3. OXALIPLATIN [Suspect]
     Active Substance: OXALIPLATIN
     Indication: Adenocarcinoma pancreas
     Dosage: NINE CYCLES
  4. LEUCOVORIN [Suspect]
     Active Substance: LEUCOVORIN
     Indication: Adenocarcinoma pancreas
     Dosage: NINE CYCLES

REACTIONS (6)
  - Polyneuropathy [Unknown]
  - Diarrhoea [Unknown]
  - Thrombocytopenia [Unknown]
  - Weight decreased [Unknown]
  - Nausea [Unknown]
  - Off label use [Unknown]
